FAERS Safety Report 20452669 (Version 1)
Quarter: 2022Q1

REPORT INFORMATION
  Report Type: Spontaneous
  Country: JP (occurrence: JP)
  Receive Date: 20220210
  Receipt Date: 20220210
  Transmission Date: 20220423
  Serious: Yes (Other)
  Sender: FDA-Public Use
  Company Number: JP-SUN PHARMACEUTICAL INDUSTRIES LTD-2022R1-325808

PATIENT
  Age: 70 Year
  Sex: Female

DRUGS (2)
  1. CHLORPROMAZINE [Suspect]
     Active Substance: CHLORPROMAZINE
     Indication: Anxiety disorder
     Dosage: 50 MILLIGRAM, QD
     Route: 065
  2. CHLORPROMAZINE [Suspect]
     Active Substance: CHLORPROMAZINE
     Dosage: 75 MILLIGRAM, QD
     Route: 065

REACTIONS (3)
  - Disease recurrence [Unknown]
  - Therapeutic response unexpected [Unknown]
  - Somnolence [Recovering/Resolving]
